FAERS Safety Report 9426344 (Version 3)
Quarter: 2013Q4

REPORT INFORMATION
  Report Type: Spontaneous
  Country: BR (occurrence: BR)
  Receive Date: 20130730
  Receipt Date: 20131008
  Transmission Date: 20140711
  Serious: Yes (Other)
  Sender: FDA-Public Use
  Company Number: BR-RANBAXY-2013R5-70805

PATIENT
  Sex: Female
  Weight: 42 kg

DRUGS (2)
  1. ISOTRETINOIN [Suspect]
     Indication: ACNE
     Dosage: 20 MG, QD
     Route: 048
     Dates: start: 201206, end: 201207
  2. ISOTRETINOIN [Suspect]
     Dosage: UNK
     Route: 048
     Dates: end: 201212

REACTIONS (4)
  - Weight decreased [Recovered/Resolved]
  - Syncope [Recovered/Resolved]
  - Rheumatic disorder [Recovered/Resolved]
  - Anaemia [Recovered/Resolved]
